FAERS Safety Report 19607488 (Version 3)
Quarter: 2022Q2

REPORT INFORMATION
  Report Type: Spontaneous
  Country: US (occurrence: US)
  Receive Date: 20210726
  Receipt Date: 20220428
  Transmission Date: 20220721
  Serious: Yes (Death)
  Sender: FDA-Public Use
  Company Number: US-GLOBAL BLOOD THERAPEUTICS INC-US-GBT-21-02491

PATIENT
  Age: 56 Year
  Sex: Female

DRUGS (8)
  1. OXBRYTA [Suspect]
     Active Substance: VOXELOTOR
     Indication: Sickle cell disease
     Route: 048
     Dates: start: 20200121, end: 20210202
  2. UNSPECIFIED INGREDIENT [Concomitant]
     Active Substance: UNSPECIFIED INGREDIENT
     Indication: Sickle cell disease
     Dosage: NOT PROVIDED
     Dates: start: 202102
  3. METOPROLOL [Concomitant]
     Active Substance: METOPROLOL
     Indication: Product used for unknown indication
     Dosage: NOT PROVIDED
  4. EPOGEN [Concomitant]
     Active Substance: ERYTHROPOIETIN
     Indication: Product used for unknown indication
     Dosage: NOT PROVIDED
  5. DEFERIPRONE [Concomitant]
     Active Substance: DEFERIPRONE
     Indication: Product used for unknown indication
     Dosage: NOT PROVIDED
  6. FUROSEMIDE [Concomitant]
     Active Substance: FUROSEMIDE
     Indication: Product used for unknown indication
     Dosage: NOT PROVIDED
  7. LEVOTHYROXINE [Concomitant]
     Active Substance: LEVOTHYROXINE
     Indication: Product used for unknown indication
     Dosage: NOT PROVIDED
  8. SODIUM BICARBONATE [Concomitant]
     Active Substance: SODIUM BICARBONATE
     Indication: Product used for unknown indication
     Dosage: NOT PROVIDED

REACTIONS (3)
  - End stage renal disease [Fatal]
  - Mitral valve disease [Fatal]
  - Therapy cessation [Unknown]

NARRATIVE: CASE EVENT DATE: 20210202
